FAERS Safety Report 10901899 (Version 2)
Quarter: 2015Q1

REPORT INFORMATION
  Report Type: Spontaneous
  Country: FR (occurrence: FR)
  Receive Date: 20150310
  Receipt Date: 20150327
  Transmission Date: 20150721
  Serious: Yes (Life-Threatening, Other)
  Sender: FDA-Public Use
  Company Number: FR-GILEAD-2015-0136557

PATIENT
  Age: 35 Year
  Sex: Male
  Weight: 96 kg

DRUGS (3)
  1. DIPROSONE [Suspect]
     Active Substance: BETAMETHASONE DIPROPIONATE
     Indication: PRURITUS
     Dosage: UNK
     Route: 062
     Dates: start: 20141126, end: 20141221
  2. SOVALDI [Suspect]
     Active Substance: SOFOSBUVIR
     Indication: HEPATITIS C
     Dosage: 400 MG, QD
     Route: 048
     Dates: start: 20141106, end: 20150204
  3. DACLATASVIR [Suspect]
     Active Substance: DACLATASVIR
     Indication: HEPATITIS C
     Dosage: 60 MG, QD
     Route: 048
     Dates: start: 20141106, end: 20150204

REACTIONS (9)
  - Skin lesion [Unknown]
  - Viral infection [Unknown]
  - Dyspnoea exertional [Unknown]
  - Pruritus [Unknown]
  - Atrioventricular block second degree [Recovered/Resolved]
  - Chest discomfort [Recovered/Resolved]
  - Palpitations [Recovered/Resolved]
  - Sinus rhythm [Recovered/Resolved]
  - Electrocardiogram ambulatory abnormal [Unknown]

NARRATIVE: CASE EVENT DATE: 20141126
